FAERS Safety Report 6574016-3 (Version None)
Quarter: 2010Q1

REPORT INFORMATION
  Report Type: 
  Country: None (occurrence: None)
  Receive Date: 20100208
  Receipt Date: 20100126
  Transmission Date: 20100710
  Serious: No
  Sender: FDA-Public Use
  Company Number: NL-ELI_LILLY_AND_COMPANY-NL200912005381

PATIENT
  Sex: Female

DRUGS (3)
  1. ZYPREXA [Suspect]
     Indication: BIPOLAR DISORDER
     Dosage: 5 MG, EACH EVENING
     Dates: start: 20091111, end: 20091229
  2. CARBAMAZEPINE [Concomitant]
     Indication: BIPOLAR DISORDER
     Dosage: UNK, 2/D
  3. CAMCOLIT [Concomitant]
     Indication: BIPOLAR DISORDER
     Dosage: 400 MG, 2/D

REACTIONS (2)
  - CONTUSION [None]
  - THROMBOCYTOPENIA [None]
